FAERS Safety Report 5986402-0 (Version None)
Quarter: 2008Q4

REPORT INFORMATION
  Report Type: 
  Country: None (occurrence: None)
  Receive Date: 20081203
  Receipt Date: 20081117
  Transmission Date: 20090506
  Serious: Yes (Other)
  Sender: FDA-Public Use
  Company Number: 2008S1000528

PATIENT
  Age: 29 Year
  Sex: Female

DRUGS (2)
  1. ACITRETIN [Suspect]
     Indication: ICHTHYOSIS
     Dosage: 10 MG; QD; PO
     Route: 048
     Dates: start: 19930101, end: 20071201
  2. UNKNOWN TOPICAL MEDICATION [Concomitant]

REACTIONS (3)
  - CAESAREAN SECTION [None]
  - DRUG EXPOSURE DURING PREGNANCY [None]
  - PREGNANCY [None]
